FAERS Safety Report 18129493 (Version 23)
Quarter: 2022Q1

REPORT INFORMATION
  Report Type: Report from Study
  Country: CN (occurrence: None)
  Receive Date: 20200810
  Receipt Date: 20220205
  Transmission Date: 20220423
  Serious: Yes (Hospitalization)
  Sender: FDA-Public Use
  Company Number: CN-ROCHE-2654234

PATIENT
  Age: 70 Year
  Sex: Male
  Weight: 73 kg

DRUGS (32)
  1. ATEZOLIZUMAB [Suspect]
     Active Substance: ATEZOLIZUMAB
     Indication: Non-small cell lung cancer
     Dosage: ON 15/JUL/2020, HE RECEIVED THE MOST RECENT DOSE OF IV ATEZOLIZUMAB
     Route: 041
     Dates: start: 20200624
  2. PEMETREXED [Suspect]
     Active Substance: PEMETREXED
     Indication: Non-small cell lung cancer
     Dosage: THE MOST RECENT DOSE OF PEMETREXED PRIOR TO ONSET OF EVENT WAS ON 15/JUL/2020 (910 MG)
     Route: 042
     Dates: start: 20200624
  3. CARBOPLATIN [Suspect]
     Active Substance: CARBOPLATIN
     Indication: Non-small cell lung cancer
     Dosage: DOSE: 6 MG/ML/MIN.?THE MOST RECENT DOSE OF CARBOPLATIN PRIOR TO ONSET OF EVENT WAS ON 15/JUL/2020 (6
     Route: 042
     Dates: start: 20200624
  4. BEVACIZUMAB [Suspect]
     Active Substance: BEVACIZUMAB
     Indication: Non-small cell lung cancer
     Dosage: THE MOST RECENT DOSE OF BEVACIZUMAB PRIOR TO ONSET OF EVENT WAS ON 15/JUL/2020 (1110 MG)
     Route: 042
     Dates: start: 20200624
  5. FOLIC ACID [Concomitant]
     Active Substance: FOLIC ACID
     Dates: start: 20200716
  6. FOLIC ACID [Concomitant]
     Active Substance: FOLIC ACID
     Dates: start: 20200616
  7. DEXAMETHASONE ACETATE [Concomitant]
     Active Substance: DEXAMETHASONE ACETATE
     Indication: Allergy prophylaxis
     Route: 048
     Dates: start: 20200625, end: 20200626
  8. DEXAMETHASONE ACETATE [Concomitant]
     Active Substance: DEXAMETHASONE ACETATE
     Route: 048
     Dates: start: 20200627, end: 20200627
  9. DEXAMETHASONE ACETATE [Concomitant]
     Active Substance: DEXAMETHASONE ACETATE
     Route: 048
     Dates: start: 20200804, end: 20200804
  10. DEXAMETHASONE ACETATE [Concomitant]
     Active Substance: DEXAMETHASONE ACETATE
     Route: 048
     Dates: start: 20200715, end: 20200716
  11. DEXAMETHASONE ACETATE [Concomitant]
     Active Substance: DEXAMETHASONE ACETATE
     Route: 048
     Dates: start: 20200717, end: 20200717
  12. DEXAMETHASONE ACETATE [Concomitant]
     Active Substance: DEXAMETHASONE ACETATE
     Route: 048
     Dates: start: 20200805, end: 20200805
  13. OMEPRAZOLE [Concomitant]
     Active Substance: OMEPRAZOLE
     Dates: start: 20200625, end: 20200701
  14. OMEPRAZOLE [Concomitant]
     Active Substance: OMEPRAZOLE
     Dates: start: 20200804, end: 20200805
  15. OMEPRAZOLE [Concomitant]
     Active Substance: OMEPRAZOLE
     Dates: start: 20200715, end: 20200717
  16. LEUCOGEN [Concomitant]
     Active Substance: LEUCOGEN
     Dates: start: 20200625, end: 20200710
  17. LEUCOGEN [Concomitant]
     Active Substance: LEUCOGEN
     Dates: start: 20200716, end: 20200801
  18. ONDANSETRON HYDROCHLORIDE [Concomitant]
     Active Substance: ONDANSETRON HYDROCHLORIDE
     Dates: start: 20200625, end: 20200628
  19. ONDANSETRON HYDROCHLORIDE [Concomitant]
     Active Substance: ONDANSETRON HYDROCHLORIDE
     Dates: start: 20200625, end: 20200629
  20. MAGNESIUM ISOGLYCYRRHIZINATE [Concomitant]
     Active Substance: MAGNESIUM ISOGLYCYRRHIZINATE
     Dates: start: 20200804, end: 20200804
  21. MAGNESIUM ISOGLYCYRRHIZINATE [Concomitant]
     Active Substance: MAGNESIUM ISOGLYCYRRHIZINATE
     Dates: start: 20200901, end: 20200906
  22. GLUTATHIONE [Concomitant]
     Active Substance: GLUTATHIONE
     Dates: start: 20200804, end: 20200804
  23. GLUTATHIONE [Concomitant]
     Active Substance: GLUTATHIONE
     Dates: start: 20200806, end: 20200811
  24. BICYCLOL [Concomitant]
     Active Substance: BICYCLOL
     Route: 048
     Dates: end: 20200804
  25. BICYCLOL [Concomitant]
     Active Substance: BICYCLOL
     Dates: start: 20210806, end: 20210811
  26. OMEPRAZOLE MAGNESIUM [Concomitant]
     Active Substance: OMEPRAZOLE MAGNESIUM
     Dates: start: 20200715, end: 20200717
  27. OMEPRAZOLE MAGNESIUM [Concomitant]
     Active Substance: OMEPRAZOLE MAGNESIUM
     Dates: start: 20200804, end: 20200805
  28. BETAMETHASONE SODIUM PHOSPHATE [Concomitant]
     Active Substance: BETAMETHASONE SODIUM PHOSPHATE
     Route: 058
     Dates: start: 20200715, end: 20200715
  29. LANSOPRAZOLE [Concomitant]
     Active Substance: LANSOPRAZOLE
     Dates: start: 20200715, end: 20200715
  30. TROPISETRON HYDROCHLORIDE [Concomitant]
     Active Substance: TROPISETRON HYDROCHLORIDE
     Dates: start: 20200715, end: 20200715
  31. ADEMETIONINE [Concomitant]
     Active Substance: ADEMETIONINE
     Dates: start: 20200901, end: 20200906
  32. ADEMETIONINE [Concomitant]
     Active Substance: ADEMETIONINE
     Dates: start: 20200909, end: 20200909

REACTIONS (1)
  - Liver injury [Recovered/Resolved]

NARRATIVE: CASE EVENT DATE: 20200725
